FAERS Safety Report 6521577-6 (Version None)
Quarter: 2009Q4

REPORT INFORMATION
  Report Type: 
  Country: None (occurrence: None)
  Receive Date: 20091230
  Receipt Date: 20091216
  Transmission Date: 20100525
  Serious: Yes (Other)
  Sender: FDA-Public Use
  Company Number: PHHY2009JP54332

PATIENT

DRUGS (1)
  1. TEGRETOL [Suspect]
     Dosage: UNK
     Route: 048

REACTIONS (1)
  - VISUAL FIELD DEFECT [None]
